FAERS Safety Report 16700072 (Version 3)
Quarter: 2019Q4

REPORT INFORMATION
  Report Type: Report from Study
  Country: None (occurrence: GB)
  Receive Date: 20190813
  Receipt Date: 20191106
  Transmission Date: 20200122
  Serious: Yes (Hospitalization)
  Sender: FDA-Public Use
  Company Number: GB-ABBVIE-19K-167-2883686-00

PATIENT
  Age: 57 Year
  Sex: Female

DRUGS (2)
  1. HUMIRA [Suspect]
     Active Substance: ADALIMUMAB
     Indication: PRODUCT USED FOR UNKNOWN INDICATION
     Route: 058
  2. IMRALDI [Suspect]
     Active Substance: ADALIMUMAB
     Indication: ANKYLOSING SPONDYLITIS
     Route: 058
     Dates: start: 201807

REACTIONS (10)
  - Bedridden [Unknown]
  - Feeling cold [Unknown]
  - Product substitution issue [Unknown]
  - Hyperhidrosis [Unknown]
  - Headache [Unknown]
  - Cardiac flutter [Unknown]
  - Swelling face [Unknown]
  - Injection site pain [Unknown]
  - Back pain [Unknown]
  - Joint swelling [Unknown]
